FAERS Safety Report 8552389-X (Version None)
Quarter: 2012Q3

REPORT INFORMATION
  Report Type: 
  Country: None (occurrence: None)
  Receive Date: 20120731
  Receipt Date: 20120717
  Transmission Date: 20120928
  Serious: Yes (Hospitalization)
  Sender: FDA-Public Use
  Company Number: ZA-SANOFI-AVENTIS-2012SA050687

PATIENT
  Age: 48 Year
  Sex: Female

DRUGS (3)
  1. GLUCOPHAGE [Concomitant]
     Route: 048
     Dates: start: 20080101
  2. LANTUS SOLOSTAR [Suspect]
     Indication: TYPE 2 DIABETES MELLITUS
     Route: 058
     Dates: start: 20100101
  3. SOLOSTAR [Suspect]
     Indication: DEVICE THERAPY

REACTIONS (2)
  - LUNG INFECTION [None]
  - DYSPNOEA [None]
